FAERS Safety Report 16839630 (Version 1)
Quarter: 2019Q3

REPORT INFORMATION
  Report Type: Spontaneous
  Country: US (occurrence: US)
  Receive Date: 20190801
  Receipt Date: 20190801
  Transmission Date: 20191005
  Serious: Yes (Hospitalization)
  Sender: FDA-Public Use
  Company Number: None

PATIENT
  Age: 7 Month
  Sex: Female

DRUGS (1)
  1. ZENPEP [Suspect]
     Active Substance: PANCRELIPASE AMYLASE\PANCRELIPASE LIPASE\PANCRELIPASE PROTEASE
     Indication: CYSTIC FIBROSIS
     Dosage: DOSE AMOUNT: 20CS/DAY
     Route: 048
     Dates: start: 20190110

REACTIONS (2)
  - Weight decreased [None]
  - Condition aggravated [None]

NARRATIVE: CASE EVENT DATE: 20190730
